FAERS Safety Report 8442372 (Version 3)
Quarter: 2014Q1

REPORT INFORMATION
  Report Type: Spontaneous
  Country: US (occurrence: US)
  Receive Date: 20120306
  Receipt Date: 20140320
  Transmission Date: 20141002
  Serious: Yes (Hospitalization, Other)
  Sender: FDA-Public Use
  Company Number: US-BAYER-2012-019433

PATIENT
  Age: 20 Year
  Sex: Female
  Weight: 61 kg

DRUGS (4)
  1. YAZ [Suspect]
     Dosage: UNK
     Dates: start: 20010501
  2. LEVBID [Concomitant]
     Indication: ABDOMINAL PAIN
     Dosage: 1 TWICE A DAY
  3. REGLAN [Concomitant]
  4. MIDOL CRAMP [Concomitant]
     Dosage: AS NEEDED

REACTIONS (3)
  - Gallbladder disorder [None]
  - Biliary colic [None]
  - Biliary dyskinesia [None]
